FAERS Safety Report 25984256 (Version 1)
Quarter: 2025Q4

REPORT INFORMATION
  Report Type: Spontaneous
  Country: US (occurrence: US)
  Receive Date: 20251031
  Receipt Date: 20251031
  Transmission Date: 20260118
  Serious: No
  Sender: PFIZER
  Company Number: US-PFIZER INC-PV202500128312

PATIENT
  Age: 63 Year
  Sex: Male

DRUGS (3)
  1. PANTOPRAZOLE [Suspect]
     Active Substance: PANTOPRAZOLE
     Dosage: UNK
  2. PEDMARK [Suspect]
     Active Substance: SODIUM THIOSULFATE
     Dosage: 44.8 MG, CYCLIC (CYCLE 1: 44.8 GRAMS (20 MG/M2) OVER 45 MINUTES / 4 VIALS PER DOSE, INTRAVENOUS USE)
     Route: 042
     Dates: start: 20250923, end: 2025
  3. PEDMARK [Suspect]
     Active Substance: SODIUM THIOSULFATE
     Dosage: 44.8 MG, CYCLIC (CYCLE 2: 44.8 GRAMS (20 MG/M2) OVER 45 MINUTES / 4 VIALS PER DOSE, INTRAVENOUS USE)
     Route: 042
     Dates: start: 20251014

REACTIONS (7)
  - Feeling hot [Unknown]
  - Chills [Unknown]
  - Regurgitation [Unknown]
  - Pruritus [Recovered/Resolved]
  - Headache [Recovered/Resolved]
  - Arthralgia [Unknown]
  - Nausea [Unknown]

NARRATIVE: CASE EVENT DATE: 20250101
